FAERS Safety Report 8356685-0 (Version None)
Quarter: 2012Q2

REPORT INFORMATION
  Report Type: 
  Country: None (occurrence: None)
  Receive Date: 20120514
  Receipt Date: 20120510
  Transmission Date: 20120825
  Serious: Yes (Death)
  Sender: FDA-Public Use
  Company Number: PHHY2012FR016962

PATIENT
  Sex: Female
  Weight: 65 kg

DRUGS (3)
  1. HYDREA [Concomitant]
     Indication: THROMBOCYTOSIS
     Dosage: 1 G, DAILY
     Dates: start: 20080901, end: 20111201
  2. IMATINIB MESYLATE [Suspect]
     Indication: CHRONIC MYELOID LEUKAEMIA
     Dosage: 400 MG, DAILY
     Route: 048
     Dates: start: 20031120
  3. ARANESP [Concomitant]
     Indication: ANAEMIA
     Dosage: 300 UG, UNK
     Dates: start: 20090101, end: 20110101

REACTIONS (2)
  - RESPIRATORY DISTRESS [None]
  - ATELECTASIS [None]
